APPROVED DRUG PRODUCT: CELESTONE
Active Ingredient: BETAMETHASONE SODIUM PHOSPHATE
Strength: EQ 3MG BASE/ML **Federal Register determination that product was not discontinued or withdrawn for safety or effectiveness reasons**
Dosage Form/Route: INJECTABLE;INJECTION
Application: N017561 | Product #001
Applicant: SCHERING CORP SUB SCHERING PLOUGH CORP
Approved: Approved Prior to Jan 1, 1982 | RLD: Yes | RS: No | Type: DISCN